FAERS Safety Report 9378002 (Version 2)
Quarter: 2013Q4

REPORT INFORMATION
  Report Type: Spontaneous
  Country: US (occurrence: US)
  Receive Date: 20130701
  Receipt Date: 20131119
  Transmission Date: 20140711
  Serious: Yes (Other)
  Sender: FDA-Public Use
  Company Number: PHHY2013US066220

PATIENT
  Age: 85 Year
  Sex: Male

DRUGS (3)
  1. ACETYLSALICYLIC ACID [Suspect]
     Indication: MIGRAINE
     Route: 048
  2. COUMADINE [Interacting]
  3. EXCEDRIN MIGRAINE [Concomitant]
     Dosage: 2 DF/DAY

REACTIONS (1)
  - Drug interaction [Not Recovered/Not Resolved]
